FAERS Safety Report 20567569 (Version 1)
Quarter: 2022Q1

REPORT INFORMATION
  Report Type: Spontaneous
  Country: CN (occurrence: CN)
  Receive Date: 20220308
  Receipt Date: 20220308
  Transmission Date: 20220423
  Serious: Yes (Hospitalization)
  Sender: FDA-Public Use
  Company Number: CN-PFIZER INC-202200322342

PATIENT
  Age: 64 Year
  Sex: Female
  Weight: 64 kg

DRUGS (2)
  1. IBRANCE [Suspect]
     Active Substance: PALBOCICLIB
     Indication: Lung neoplasm malignant
     Dosage: 125 MG, 1X/DAY
     Route: 048
     Dates: start: 20220126, end: 20220210
  2. IBRANCE [Suspect]
     Active Substance: PALBOCICLIB
     Dosage: REDUCED
     Route: 048
     Dates: end: 20220210

REACTIONS (7)
  - Hepatic function abnormal [Not Recovered/Not Resolved]
  - Intentional product misuse [Unknown]
  - White blood cell count decreased [Unknown]
  - Platelet count decreased [Unknown]
  - Diarrhoea [Unknown]
  - Dyspnoea exertional [Unknown]
  - Asthenia [Unknown]

NARRATIVE: CASE EVENT DATE: 20220126
